FAERS Safety Report 7013597-2 (Version None)
Quarter: 2010Q3

REPORT INFORMATION
  Report Type: 
  Country: None (occurrence: None)
  Receive Date: 20100924
  Receipt Date: 20100916
  Transmission Date: 20110219
  Serious: Yes (Other)
  Sender: FDA-Public Use
  Company Number: GXKR2010GB10627

PATIENT
  Age: 85 Year
  Sex: Female

DRUGS (6)
  1. OMEPRAZOLE (NGX) [Suspect]
     Route: 065
  2. MELOXICAM [Concomitant]
     Indication: OSTEOARTHRITIS
     Dosage: UNK
  3. RAMIPRIL [Concomitant]
     Dosage: UNK
  4. ISOSORBIDE MONONITRATE [Concomitant]
     Dosage: UNK
  5. BENDROFLUMETHIAZIDE [Concomitant]
     Dosage: UNK
  6. ACETYLSALICYLIC ACID [Concomitant]
     Dosage: UNK

REACTIONS (2)
  - CUTANEOUS LUPUS ERYTHEMATOSUS [None]
  - EXFOLIATIVE RASH [None]
